FAERS Safety Report 4951453-1 (Version None)
Quarter: 2006Q1

REPORT INFORMATION
  Report Type: 
  Country: None (occurrence: None)
  Receive Date: 20060317
  Receipt Date: 20060309
  Transmission Date: 20060701
  Serious: Yes (Other)
  Sender: FDA-Public Use
  Company Number: 2006034418

PATIENT
  Age: 48 Year
  Sex: Female

DRUGS (4)
  1. ZYRTEC [Suspect]
     Indication: ILL-DEFINED DISORDER
  2. BENADRYL [Suspect]
     Indication: ILL-DEFINED DISORDER
  3. ZOLOFT [Suspect]
     Indication: DEPRESSION
  4. ALL OTHER THERAPEUTIC PRODUCTS [Concomitant]

REACTIONS (4)
  - BEDRIDDEN [None]
  - BLINDNESS [None]
  - DRUG EFFECT DECREASED [None]
  - WEIGHT DECREASED [None]
